FAERS Safety Report 15196288 (Version 1)
Quarter: 2018Q3

REPORT INFORMATION
  Report Type: Report from Study
  Country: US (occurrence: US)
  Receive Date: 20180725
  Receipt Date: 20180725
  Transmission Date: 20181010
  Serious: Yes (Hospitalization, Other)
  Sender: FDA-Public Use
  Company Number: PHHO2017US013241

PATIENT
  Age: 11 Year
  Sex: Female
  Weight: 36.5 kg

DRUGS (3)
  1. KYMRIAH [Suspect]
     Active Substance: TISAGENLECLEUCEL
     Indication: ACUTE LYMPHOCYTIC LEUKAEMIA
     Dosage: 1.25E+06 CART19 CELLS/KG (10%), ONCE
     Route: 042
     Dates: start: 20170912, end: 20170912
  2. BACTRIM [Concomitant]
     Active Substance: SULFAMETHOXAZOLE\TRIMETHOPRIM
     Indication: PRODUCT USED FOR UNKNOWN INDICATION
     Dosage: 80 MG, BID (Q SAT/SUN)
     Route: 048
     Dates: start: 20170531
  3. KYMRIAH [Suspect]
     Active Substance: TISAGENLECLEUCEL
     Dosage: 3.75E+06 CART19 CELLS/KG (30%), ONCE
     Route: 042
     Dates: start: 20170913, end: 20170913

REACTIONS (5)
  - Cytokine release syndrome [Recovered/Resolved]
  - Encephalopathy [Recovered/Resolved]
  - Sinus bradycardia [Recovered/Resolved]
  - Febrile neutropenia [Recovered/Resolved]
  - Seizure [Recovered/Resolved]

NARRATIVE: CASE EVENT DATE: 20170914
